FAERS Safety Report 21477289 (Version 1)
Quarter: 2022Q4

REPORT INFORMATION
  Report Type: Spontaneous
  Country: US (occurrence: US)
  Receive Date: 20221019
  Receipt Date: 20221019
  Transmission Date: 20230113
  Serious: Yes (Other)
  Sender: FDA-Public Use
  Company Number: US-CIPLA LTD.-2022US06138

PATIENT
  Age: 64 Year
  Sex: Female

DRUGS (2)
  1. AZACITIDINE [Suspect]
     Active Substance: AZACITIDINE
     Indication: Refractory cytopenia with multilineage dysplasia
     Dosage: UNK
     Route: 065
  2. LUSPATERCEPT [Suspect]
     Active Substance: LUSPATERCEPT
     Indication: Refractory cytopenia with multilineage dysplasia
     Dosage: UNK
     Route: 065

REACTIONS (1)
  - Treatment failure [Unknown]
